FAERS Safety Report 10203538 (Version 2)
Quarter: 2014Q2

REPORT INFORMATION
  Report Type: Report from Study
  Country: US (occurrence: US)
  Receive Date: 20140529
  Receipt Date: 20140602
  Transmission Date: 20141212
  Serious: Yes (Death)
  Sender: FDA-Public Use
  Company Number: US-BAYER-2014-079461

PATIENT
  Age: 56 Year
  Sex: Female
  Weight: 109.1 kg

DRUGS (8)
  1. SORAFENIB (RAF KINASE INHIBITOR) [Suspect]
     Indication: METASTATIC GLIOMA
     Dosage: 400 MG, BID (7 ON 7 OFF)
     Route: 048
     Dates: start: 20140131, end: 20140227
  2. EVEROLIMUS [Suspect]
     Indication: METASTATIC GLIOMA
     Dosage: 5 MG, QD
     Route: 048
     Dates: start: 20140131, end: 20140227
  3. LISINOPRIL [Concomitant]
     Dosage: 20 MG, BID
     Route: 048
  4. METOPROLOL SUCCINATE [Concomitant]
     Dosage: 25 MG, QD
     Route: 048
  5. DEXAMETHASONE ACETATE [Concomitant]
     Dosage: 4 MG, BID
     Route: 048
  6. KEPPRA [Concomitant]
     Indication: PARTIAL SEIZURES
     Dosage: 2000 MG, BID
     Route: 048
  7. LACOSAMIDE [Concomitant]
     Indication: PARTIAL SEIZURES
     Dosage: 200 MG, BID
     Route: 048
  8. DILANTIN [Concomitant]
     Indication: PARTIAL SEIZURES

REACTIONS (1)
  - Embolism [Fatal]
